FAERS Safety Report 4550575-7 (Version None)
Quarter: 2005Q1

REPORT INFORMATION
  Report Type: 
  Country: None (occurrence: None)
  Receive Date: 20050112
  Receipt Date: 20041209
  Transmission Date: 20050727
  Serious: Yes (Death, Hospitalization, Other)
  Sender: FDA-Public Use
  Company Number: FR-ABBOTT-04P-056-0283040-00

PATIENT
  Age: 36 Year
  Sex: Male
  Weight: 80 kg

DRUGS (12)
  1. KALETRA [Suspect]
     Indication: HIV INFECTION
     Dates: start: 20020101, end: 20040901
  2. KALETRA [Suspect]
     Dates: start: 20040901, end: 20041001
  3. LAMIVUDINE AND ZIDOVUDINE [Suspect]
     Indication: HIV INFECTION
     Route: 048
     Dates: start: 20020101, end: 20040901
  4. LAMIVUDINE AND ZIDOVUDINE [Suspect]
     Dates: start: 20040901, end: 20041001
  5. RIBAVIRIN [Suspect]
     Indication: HEPATITIS B
     Route: 048
     Dates: start: 20040901, end: 20041001
  6. PERINTERFERON [Suspect]
     Indication: HEPATITIS B
     Route: 058
     Dates: start: 20040901, end: 20040901
  7. BUPRENORPHINE [Suspect]
     Indication: DRUG ABUSER
     Route: 048
     Dates: end: 20041001
  8. GABAPENTIN [Suspect]
     Indication: DRUG USE FOR UNKNOWN INDICATION
     Route: 048
     Dates: end: 20041001
  9. MINOCYCLINE HCL [Concomitant]
     Indication: INFECTION PROPHYLAXIS
  10. CLARITHROMYCIN [Concomitant]
     Indication: INFECTION PROPHYLAXIS
  11. PENTAMIDINE [Concomitant]
     Indication: INFECTION PROPHYLAXIS
  12. GABAPENTIN [Concomitant]
     Dates: start: 20020101, end: 20041001

REACTIONS (6)
  - CHILLS [None]
  - COMA [None]
  - HEPATIC ENCEPHALOPATHY [None]
  - HEPATIC FAILURE [None]
  - OEDEMA [None]
  - PYREXIA [None]
